FAERS Safety Report 9339497 (Version 2)
Quarter: 2013Q2

REPORT INFORMATION
  Report Type: Spontaneous
  Country: FR (occurrence: FR)
  Receive Date: 20130610
  Receipt Date: 20130614
  Transmission Date: 20140414
  Serious: Yes (Death, Life-Threatening)
  Sender: FDA-Public Use
  Company Number: FR-SANOFI-AVENTIS-2013SA056391

PATIENT
  Sex: Male
  Weight: 101 kg

DRUGS (1)
  1. TAXOTERE [Suspect]
     Indication: PROSTATE CANCER
     Route: 042
     Dates: end: 20130507

REACTIONS (15)
  - Septic shock [Fatal]
  - Toxic skin eruption [Fatal]
  - Rash erythematous [Fatal]
  - Extravasation blood [Fatal]
  - Hepatocellular injury [Fatal]
  - Hypoalbuminaemia [Fatal]
  - Transaminases increased [Fatal]
  - Gamma-glutamyltransferase increased [Fatal]
  - Aspartate aminotransferase increased [Fatal]
  - Alanine aminotransferase increased [Fatal]
  - Hepatitis cholestatic [Fatal]
  - Blood bilirubin increased [Fatal]
  - Bilirubin conjugated increased [Fatal]
  - Generalised oedema [Fatal]
  - Hypoproteinaemia [Fatal]
